FAERS Safety Report 10163110 (Version 1)
Quarter: 2014Q2

REPORT INFORMATION
  Report Type: Spontaneous
  Country: CA (occurrence: CA)
  Receive Date: 20140509
  Receipt Date: 20140509
  Transmission Date: 20141212
  Serious: Yes (Life-Threatening, Hospitalization)
  Sender: FDA-Public Use
  Company Number: CA-GLAXOSMITHKLINE-A1071060A

PATIENT
  Sex: Male

DRUGS (2)
  1. LAMOTRIGINE [Suspect]
     Indication: DEPRESSION
     Route: 065
     Dates: end: 20140416
  2. CYMBALTA [Concomitant]
     Dosage: 60MG PER DAY
     Route: 048

REACTIONS (6)
  - Tremor [Recovered/Resolved]
  - Asthenia [Unknown]
  - Rash generalised [Recovered/Resolved]
  - Influenza like illness [Recovered/Resolved]
  - Liver disorder [Unknown]
  - Oral disorder [Recovered/Resolved]
